FAERS Safety Report 8377072-5 (Version None)
Quarter: 2012Q2

REPORT INFORMATION
  Report Type: 
  Country: None (occurrence: None)
  Receive Date: 20120518
  Receipt Date: 20120507
  Transmission Date: 20120825
  Serious: Yes (Death, Other)
  Sender: FDA-Public Use
  Company Number: 2012P1024392

PATIENT
  Age: 54 Year
  Sex: Male

DRUGS (3)
  1. PHENYTOIN [Suspect]
     Indication: CONVULSION
     Dates: start: 20101202
  2. OMEPRAZOLE [Suspect]
     Indication: MELAENA
  3. OMEPRAZOLE [Suspect]
     Indication: GASTRIC HAEMORRHAGE

REACTIONS (15)
  - DIALYSIS [None]
  - AMYLASE INCREASED [None]
  - BLOOD TRYPSIN INCREASED [None]
  - LYMPHOCYTE STIMULATION TEST POSITIVE [None]
  - HYPOGAMMAGLOBULINAEMIA [None]
  - ALANINE AMINOTRANSFERASE INCREASED [None]
  - DRUG RASH WITH EOSINOPHILIA AND SYSTEMIC SYMPTOMS [None]
  - HYPERBILIRUBINAEMIA [None]
  - BLOOD ELASTASE INCREASED [None]
  - RENAL IMPAIRMENT [None]
  - CORNEAL EPITHELIUM DEFECT [None]
  - GASTRIC HAEMORRHAGE [None]
  - BLOOD DISORDER [None]
  - TOXIC EPIDERMAL NECROLYSIS [None]
  - MULTI-ORGAN FAILURE [None]
